FAERS Safety Report 13405825 (Version 5)
Quarter: 2019Q4

REPORT INFORMATION
  Report Type: Spontaneous
  Country: US (occurrence: US)
  Receive Date: 20170405
  Receipt Date: 20191217
  Transmission Date: 20200122
  Serious: No
  Sender: FDA-Public Use
  Company Number: US-PFIZER INC-2017147520

PATIENT
  Age: 62 Year
  Sex: Female

DRUGS (1)
  1. XELJANZ [Suspect]
     Active Substance: TOFACITINIB CITRATE
     Indication: RHEUMATOID ARTHRITIS
     Dosage: 5 MG, UNK
     Dates: start: 20170201

REACTIONS (5)
  - Abdominal pain upper [Unknown]
  - Diarrhoea [Recovering/Resolving]
  - Osteoporosis [Unknown]
  - Product dose omission [Unknown]
  - Discomfort [Unknown]

NARRATIVE: CASE EVENT DATE: 20170403
